FAERS Safety Report 9149542 (Version 1)
Quarter: 2013Q1

REPORT INFORMATION
  Report Type: Spontaneous
  Country: US (occurrence: None)
  Receive Date: 20130301
  Receipt Date: 20130301
  Transmission Date: 20140127
  Serious: Yes (Life-Threatening)
  Sender: FDA-Public Use
  Company Number: None

PATIENT
  Age: 53 Year
  Sex: Female
  Weight: 87 kg

DRUGS (2)
  1. ALTEPLASE [Suspect]
     Indication: CEREBROVASCULAR ACCIDENT
     Dosage: 8 MG,  76 MG  ONETIME  IV
     Route: 042
  2. ENALAPRIL [Suspect]
     Indication: HYPERTENSION
     Dosage: 2.5 MG  ONETIME  IV
     Route: 042

REACTIONS (2)
  - Angioedema [None]
  - Obstructive airways disorder [None]
